FAERS Safety Report 24930491 (Version 1)
Quarter: 2025Q1

REPORT INFORMATION
  Report Type: Report from Study
  Country: US (occurrence: US)
  Receive Date: 20250205
  Receipt Date: 20250205
  Transmission Date: 20250409
  Serious: Yes (Death)
  Sender: AMARIN
  Company Number: US-Amarin Pharma  Inc-2025AMR000053

PATIENT
  Sex: Male

DRUGS (1)
  1. VASCEPA [Suspect]
     Active Substance: ICOSAPENT ETHYL
     Indication: Hyperlipidaemia
     Route: 065

REACTIONS (1)
  - Death [Fatal]
